FAERS Safety Report 22162424 (Version 15)
Quarter: 2024Q1

REPORT INFORMATION
  Report Type: Spontaneous
  Country: US (occurrence: US)
  Receive Date: 20230331
  Receipt Date: 20240216
  Transmission Date: 20240410
  Serious: Yes (Other)
  Sender: FDA-Public Use
  Company Number: US-VERTEX PHARMACEUTICALS-2023-004490

PATIENT

DRUGS (15)
  1. TRIKAFTA [Suspect]
     Active Substance: ELEXACAFTOR\IVACAFTOR\TEZACAFTOR
     Indication: Cystic fibrosis
     Dosage: LOW DOSE
     Route: 048
  2. TRIKAFTA [Suspect]
     Active Substance: ELEXACAFTOR\IVACAFTOR\TEZACAFTOR
     Dosage: SWAPPED DOSES
     Route: 048
  3. TRIKAFTA [Suspect]
     Active Substance: ELEXACAFTOR\IVACAFTOR\TEZACAFTOR
     Dosage: STOPPED ORANGE TABLETS
     Route: 048
  4. TRIKAFTA [Suspect]
     Active Substance: ELEXACAFTOR\IVACAFTOR\TEZACAFTOR
     Dosage: STOPPED BLUE TABS
     Route: 048
  5. TRIKAFTA [Suspect]
     Active Substance: ELEXACAFTOR\IVACAFTOR\TEZACAFTOR
     Dosage: TWO ORANGE TABLETS, SKIP BLUE TABS
     Route: 048
  6. TRIKAFTA [Suspect]
     Active Substance: ELEXACAFTOR\IVACAFTOR\TEZACAFTOR
     Dosage: ONE ORANGE TAB IN THE AM
     Route: 048
  7. TRIKAFTA [Suspect]
     Active Substance: ELEXACAFTOR\IVACAFTOR\TEZACAFTOR
     Dosage: ONLY TAKING ORANGE PILLS IN AM
     Route: 048
  8. OXYCODONE [Suspect]
     Active Substance: OXYCODONE\OXYCODONE HYDROCHLORIDE
     Indication: Product used for unknown indication
     Dosage: UNK FREQ
     Route: 065
  9. PREDNISONE [Suspect]
     Active Substance: PREDNISONE
     Indication: Product used for unknown indication
     Dosage: UNK FREQ
     Route: 065
  10. PRUCALOPRIDE [Concomitant]
     Active Substance: PRUCALOPRIDE
  11. DOMPERIDONE [Concomitant]
     Active Substance: DOMPERIDONE
  12. SODIUM PICOSULFATE [Concomitant]
     Active Substance: SODIUM PICOSULFATE
  13. DOCUSATE SODIUM [Concomitant]
     Active Substance: DOCUSATE SODIUM
  14. MELATONIN [Concomitant]
     Active Substance: MELATONIN
  15. VORICONAZOLE [Concomitant]
     Active Substance: VORICONAZOLE

REACTIONS (26)
  - Pulmonary fibrosis [Unknown]
  - Anxiety [Recovering/Resolving]
  - Gastrointestinal hypomotility [Unknown]
  - Gastrointestinal disorder [Recovered/Resolved]
  - Affective disorder [Unknown]
  - Sputum increased [Not Recovered/Not Resolved]
  - Brain fog [Recovering/Resolving]
  - Staphylococcal skin infection [Unknown]
  - Vitamin B12 decreased [Unknown]
  - Sensation of foreign body [Unknown]
  - Dysphagia [Unknown]
  - Iron deficiency anaemia [Unknown]
  - Insomnia [Recovering/Resolving]
  - Panic attack [Recovering/Resolving]
  - Infection [Unknown]
  - Dyspnoea exertional [Not Recovered/Not Resolved]
  - Fatigue [Unknown]
  - Joint swelling [Recovering/Resolving]
  - Infective pulmonary exacerbation of cystic fibrosis [Not Recovered/Not Resolved]
  - Bronchial secretion retention [Not Recovered/Not Resolved]
  - Depressed mood [Recovering/Resolving]
  - Wheezing [Not Recovered/Not Resolved]
  - Nasopharyngitis [Unknown]
  - Influenza [Unknown]
  - Headache [Recovered/Resolved]
  - Abdominal discomfort [Recovered/Resolved]
